FAERS Safety Report 7893837-8 (Version None)
Quarter: 2011Q4

REPORT INFORMATION
  Report Type: 
  Country: None (occurrence: None)
  Receive Date: 20111104
  Receipt Date: 20111026
  Transmission Date: 20120403
  Serious: Yes (Other)
  Sender: FDA-Public Use
  Company Number: US-BAXTER-2011BH034730

PATIENT
  Age: 23 Year
  Sex: Female

DRUGS (7)
  1. PREDNISONE [Suspect]
     Indication: LUPUS NEPHRITIS
     Route: 065
  2. NIFEDIPINE [Suspect]
     Indication: HYPERTENSION
     Route: 065
  3. CLONIDINE [Suspect]
     Indication: HYPERTENSION
     Route: 065
  4. ASPIRIN [Suspect]
     Indication: HYPERTENSION
     Route: 065
  5. POTASSIUM CHLORIDE [Suspect]
     Indication: HYPERTENSION
     Route: 065
  6. ATENOLOL [Suspect]
     Indication: HYPERTENSION
     Route: 065
  7. CYCLOPHOSPHAMIDE [Suspect]
     Indication: LUPUS NEPHRITIS
     Route: 042

REACTIONS (1)
  - MATERNAL EXPOSURE DURING PREGNANCY [None]
